FAERS Safety Report 6866287-0 (Version None)
Quarter: 2010Q3

REPORT INFORMATION
  Report Type: 
  Country: None (occurrence: None)
  Receive Date: 20100722
  Receipt Date: 20100621
  Transmission Date: 20110219
  Serious: No
  Sender: FDA-Public Use
  Company Number: US-BAYER-201017308BCC

PATIENT
  Age: 45 Year
  Sex: Female
  Weight: 50 kg

DRUGS (5)
  1. ALEVE (CAPLET) [Suspect]
     Indication: MUSCULOSKELETAL PAIN
     Dosage: 440 MG OR 660 MG DAILY
     Route: 048
  2. VITAMIN B [Concomitant]
     Route: 065
  3. VITAMIN D [Concomitant]
     Route: 065
  4. VITAMIN 12 [Concomitant]
     Route: 065
  5. HERBAL SUPPLEMENT [Concomitant]
     Route: 065

REACTIONS (1)
  - PRURITUS [None]
